FAERS Safety Report 19000825 (Version 1)
Quarter: 2021Q1

REPORT INFORMATION
  Report Type: Spontaneous
  Country: PT (occurrence: PT)
  Receive Date: 20210311
  Receipt Date: 20210311
  Transmission Date: 20210420
  Serious: Yes (Disabling, Other)
  Sender: FDA-Public Use
  Company Number: PT-GLAXOSMITHKLINE-PTCH2021012589

PATIENT
  Age: 48 Year
  Sex: Female

DRUGS (3)
  1. LETTER [Concomitant]
     Indication: PRODUCT USED FOR UNKNOWN INDICATION
     Dosage: UNK
     Route: 065
  2. VOLTAREN [Suspect]
     Active Substance: DICLOFENAC SODIUM
     Indication: LITHIASIS
     Dosage: 150 MG, QD (1 COMPRIMIDO 8/8 HORAS) (RECEITADO PELO MEDICO, NAS URGENCIAS, NA SEQUENCIA DE UMA CRISE
     Route: 048
     Dates: start: 20210131, end: 20210131
  3. STILNOX [Concomitant]
     Active Substance: ZOLPIDEM TARTRATE
     Indication: PRODUCT USED FOR UNKNOWN INDICATION
     Dosage: UNK
     Route: 065

REACTIONS (2)
  - Swelling face [Recovered/Resolved]
  - Angioedema [Recovered/Resolved]

NARRATIVE: CASE EVENT DATE: 20210131
